FAERS Safety Report 19276421 (Version 14)
Quarter: 2022Q2

REPORT INFORMATION
  Report Type: Spontaneous
  Country: US (occurrence: US)
  Receive Date: 20210520
  Receipt Date: 20220406
  Transmission Date: 20220721
  Serious: Yes (Hospitalization, Other)
  Sender: FDA-Public Use
  Company Number: US-BLUEPRINT MEDICINES CORPORATION-SP-US-2021-000689

PATIENT
  Age: 57 Year
  Sex: Male

DRUGS (4)
  1. AYVAKIT [Suspect]
     Active Substance: AVAPRITINIB
     Indication: Gastrointestinal stromal tumour
     Route: 048
     Dates: start: 20191015
  2. AYVAKIT [Suspect]
     Active Substance: AVAPRITINIB
     Route: 048
     Dates: start: 20191015
  3. AYVAKIT [Suspect]
     Active Substance: AVAPRITINIB
     Route: 048
     Dates: start: 2020
  4. AYVAKIT [Suspect]
     Active Substance: AVAPRITINIB
     Route: 048
     Dates: start: 2020

REACTIONS (56)
  - Pericardial effusion [Unknown]
  - Pleural effusion [Unknown]
  - Haematochezia [Recovered/Resolved]
  - Abdominal neoplasm [Not Recovered/Not Resolved]
  - Neoplasm recurrence [Unknown]
  - Hepatic neoplasm [Unknown]
  - Procedural haemorrhage [Unknown]
  - Skin cancer [Unknown]
  - Neoplasm progression [Unknown]
  - Intestinal obstruction [Unknown]
  - Cough [Unknown]
  - Dry throat [Unknown]
  - Drug ineffective [Unknown]
  - Dry skin [Unknown]
  - Sneezing [Unknown]
  - Blister [Unknown]
  - Overweight [Unknown]
  - Arthralgia [Unknown]
  - Flatulence [Unknown]
  - Product taste abnormal [Unknown]
  - Increased appetite [Unknown]
  - Oliguria [Unknown]
  - Blood creatine increased [Unknown]
  - Faeces discoloured [Unknown]
  - Illness [Unknown]
  - Haemorrhoids [Recovered/Resolved]
  - Swelling [Unknown]
  - Fatigue [Unknown]
  - Insomnia [Unknown]
  - Diarrhoea [Not Recovered/Not Resolved]
  - Dyspnoea [Not Recovered/Not Resolved]
  - Decreased appetite [Unknown]
  - Vomiting [Not Recovered/Not Resolved]
  - Hair colour changes [Unknown]
  - Weight decreased [Not Recovered/Not Resolved]
  - Dyspepsia [Unknown]
  - Depression [Not Recovered/Not Resolved]
  - Anxiety [Not Recovered/Not Resolved]
  - Rash [Unknown]
  - Renal disorder [Not Recovered/Not Resolved]
  - Fall [Unknown]
  - Back injury [Unknown]
  - Nodule [Unknown]
  - Benign lymph node neoplasm [Unknown]
  - Post procedural discomfort [Unknown]
  - Pain [Unknown]
  - Hyperkeratosis [Unknown]
  - Tooth injury [Unknown]
  - Mouth injury [Unknown]
  - Procedural complication [Unknown]
  - Immunisation reaction [Unknown]
  - Malaise [Unknown]
  - Product packaging issue [Unknown]
  - Intentional product misuse [Unknown]
  - Skin disorder [Unknown]
  - Abdominal pain upper [Unknown]

NARRATIVE: CASE EVENT DATE: 20210201
